FAERS Safety Report 22530013 (Version 1)
Quarter: 2023Q2

REPORT INFORMATION
  Report Type: Spontaneous
  Country: US (occurrence: None)
  Receive Date: 20230605
  Receipt Date: 20230605
  Transmission Date: 20230721
  Serious: Yes (Death)
  Sender: FDA-Public Use
  Company Number: None

PATIENT
  Age: 78 Year
  Sex: Female

DRUGS (6)
  1. PROLIA [Suspect]
     Active Substance: DENOSUMAB
     Dosage: OTHER FREQUENCY : Q 6 MONTHS;?
     Route: 058
     Dates: start: 20210519, end: 20230508
  2. ROSUVASTATIN [Concomitant]
     Active Substance: ROSUVASTATIN
  3. LOSARTAN [Concomitant]
     Active Substance: LOSARTAN
  4. B-12 MIC LOZENGE [Concomitant]
  5. VITAMIN D2 [Concomitant]
     Active Substance: ERGOCALCIFEROL
  6. VITAMINS [Concomitant]
     Active Substance: VITAMINS

REACTIONS (1)
  - Death [None]

NARRATIVE: CASE EVENT DATE: 20230508
